FAERS Safety Report 4984224-0 (Version None)
Quarter: 2006Q2

REPORT INFORMATION
  Report Type: 
  Country: None (occurrence: None)
  Receive Date: 20060427
  Receipt Date: 20060424
  Transmission Date: 20061013
  Serious: Yes (Hospitalization, Other)
  Sender: FDA-Public Use
  Company Number: DE-AVENTIS-200611182DE

PATIENT
  Age: 76 Year
  Sex: Female
  Weight: 72 kg

DRUGS (3)
  1. ARAVA [Suspect]
     Indication: POLYARTHRITIS
     Route: 048
     Dates: start: 20001201
  2. METHOTREXATE [Suspect]
     Indication: POLYARTHRITIS
     Route: 048
     Dates: start: 19940101
  3. DECORTIN [Suspect]
     Indication: POLYARTHRITIS
     Route: 048
     Dates: start: 20000101

REACTIONS (7)
  - CHOROID MELANOMA [None]
  - HEADACHE [None]
  - HYPOTHYROIDISM [None]
  - MENINGIOMA [None]
  - NON-HODGKIN'S LYMPHOMA [None]
  - OCULAR NEOPLASM [None]
  - SKIN NEOPLASM EXCISION [None]
